FAERS Safety Report 14584589 (Version 2)
Quarter: 2018Q1

REPORT INFORMATION
  Report Type: Spontaneous
  Country: ES (occurrence: ES)
  Receive Date: 20180301
  Receipt Date: 20180302
  Transmission Date: 20180509
  Serious: Yes (Death)
  Sender: FDA-Public Use
  Company Number: ES-BAXTER-2018BAX005865

PATIENT
  Age: 9 Year
  Sex: Male

DRUGS (14)
  1. ACTINOMYCINE [Concomitant]
     Indication: EMBRYONAL RHABDOMYOSARCOMA
     Dosage: 900 MCG/M2, ON DAY 1 AND DAY 2, 7 COURSES OF IVA
     Route: 065
  2. ACTINOMYCINE [Concomitant]
     Indication: METASTASES TO BONE
  3. VINCRISTINE [Concomitant]
     Active Substance: VINCRISTINE
     Indication: EMBRYONAL RHABDOMYOSARCOMA
     Dosage: ON DAYS 1 AND 14, 7 COURSES OF IVA
     Route: 065
  4. UROMITEXAN 200MG INYECTABLE [Suspect]
     Active Substance: MESNA
     Dosage: 1800 MG/M2 DIVIDED INTO 5 DOSES GIVEN AT 3-HOUR INTERVALS
     Route: 042
  5. ACTINOMYCINE [Concomitant]
     Indication: ABDOMINAL MASS
  6. VINCRISTINE [Concomitant]
     Active Substance: VINCRISTINE
     Indication: METASTASES TO BONE
  7. TRONOXAL 1G INYECTABLE [Suspect]
     Active Substance: IFOSFAMIDE
     Indication: EMBRYONAL RHABDOMYOSARCOMA
     Dosage: ON DAY 1 AND DAY 2, 7 COURSES OF IVA
     Route: 042
  8. TRONOXAL 1G INYECTABLE [Suspect]
     Active Substance: IFOSFAMIDE
     Indication: ABDOMINAL MASS
  9. TRONOXAL 1G INYECTABLE [Suspect]
     Active Substance: IFOSFAMIDE
     Indication: METASTASES TO CENTRAL NERVOUS SYSTEM
  10. TRONOXAL 1G INYECTABLE [Suspect]
     Active Substance: IFOSFAMIDE
     Indication: METASTASES TO BONE
  11. UROMITEXAN 200MG INYECTABLE [Suspect]
     Active Substance: MESNA
     Indication: PRODUCT USED FOR UNKNOWN INDICATION
     Dosage: ADMINISTERED DURING 24- HOUR INFUSION
     Route: 041
  12. ACTINOMYCINE [Concomitant]
     Indication: METASTASES TO CENTRAL NERVOUS SYSTEM
  13. VINCRISTINE [Concomitant]
     Active Substance: VINCRISTINE
     Indication: METASTASES TO CENTRAL NERVOUS SYSTEM
  14. VINCRISTINE [Concomitant]
     Active Substance: VINCRISTINE
     Indication: ABDOMINAL MASS

REACTIONS (1)
  - Toxic encephalopathy [Fatal]
